FAERS Safety Report 6029115-1 (Version None)
Quarter: 2008Q4

REPORT INFORMATION
  Report Type: 
  Country: None (occurrence: None)
  Receive Date: 20081230
  Receipt Date: 20081217
  Transmission Date: 20090506
  Serious: Yes (Death, Hospitalization)
  Sender: FDA-Public Use
  Company Number: 2008AP003475

PATIENT
  Age: 58 Year
  Sex: Female

DRUGS (14)
  1. CYCLOSPORINE [Suspect]
  2. CLOPIDOGREL [Suspect]
     Indication: THROMBOSIS PROPHYLAXIS
     Dosage: 75 MG; QD
  3. ATORVASTATIN CALCIUM [Suspect]
     Dosage: 80 MG; QD
  4. LOVASTATIN [Concomitant]
  5. SIMVASTATIN [Concomitant]
  6. PRAVASTATIN [Concomitant]
  7. FENOFIBRATE [Concomitant]
  8. BEZAFIBRATE (BEZAFIBRATE) [Concomitant]
  9. NICOTINIC ACID [Concomitant]
  10. PREDNISONE TAB [Concomitant]
  11. AZATHIOPRINE [Concomitant]
  12. LISINOPRIL [Concomitant]
  13. ACETYLSALICYLIC ACID SRT [Concomitant]
  14. EZETIMIBE [Concomitant]

REACTIONS (3)
  - DRUG INTERACTION [None]
  - DRUG LEVEL ABOVE THERAPEUTIC [None]
  - RHABDOMYOLYSIS [None]
